FAERS Safety Report 8868616 (Version 1)
Quarter: 2012Q4

REPORT INFORMATION
  Report Type: 
  Country: US (occurrence: US)
  Receive Date: 20121026
  Receipt Date: 20121026
  Transmission Date: 20130627
  Serious: No
  Sender: FDA-Public Use
  Company Number: US-AMGEN-USASP2012046231

PATIENT
  Age: 34 Year
  Sex: Male
  Weight: 96.96 kg

DRUGS (3)
  1. ENBREL [Suspect]
     Indication: PRODUCT USED FOR UNKNOWN INDICATION
     Dosage: 50 mg, qwk
     Route: 058
  2. LISINOPRIL [Concomitant]
     Dosage: 30 mg, UNK
  3. BACTRIM [Concomitant]
     Dosage: 400-80 mg

REACTIONS (1)
  - Localised infection [Unknown]
